FAERS Safety Report 9308882 (Version 1)
Quarter: 2013Q2

REPORT INFORMATION
  Report Type: Spontaneous
  Country: CH (occurrence: CH)
  Receive Date: 20130524
  Receipt Date: 20130524
  Transmission Date: 20140414
  Serious: Yes (Hospitalization)
  Sender: FDA-Public Use
  Company Number: CH-ASTRAZENECA-2013SE35041

PATIENT
  Age: 92 Year
  Sex: Male

DRUGS (15)
  1. CASODEX [Suspect]
     Indication: PROSTATE CANCER STAGE IV
     Route: 048
     Dates: start: 20130320, end: 20130416
  2. ZOLADEX [Concomitant]
     Indication: PROSTATE CANCER STAGE IV
     Route: 058
     Dates: start: 20130403
  3. ASPIRINE [Concomitant]
     Indication: CORONARY ARTERY THROMBOSIS
     Route: 048
  4. BELOC [Concomitant]
     Indication: ESSENTIAL HYPERTENSION
     Route: 048
     Dates: end: 20130416
  5. DAFALGAN [Concomitant]
     Indication: PAIN
     Route: 048
     Dates: end: 20130416
  6. LAXOBERON [Concomitant]
     Indication: CONSTIPATION
     Route: 048
     Dates: end: 20130416
  7. TORASEMIDE [Concomitant]
     Indication: ESSENTIAL HYPERTENSION
     Route: 048
     Dates: end: 20130416
  8. VENLAFAXINE [Concomitant]
     Indication: DEPRESSION
     Dates: end: 20130416
  9. ZOLPIDEM [Concomitant]
     Indication: INSOMNIA
     Route: 048
     Dates: end: 20130416
  10. TEMGESIC [Concomitant]
     Indication: PAIN
     Route: 060
     Dates: end: 20130416
  11. QUETIAPINE [Concomitant]
     Indication: DEPRESSION
     Route: 048
  12. DOSPIR [Concomitant]
     Indication: CHRONIC OBSTRUCTIVE PULMONARY DISEASE
     Route: 055
  13. DILTIAZEM [Concomitant]
     Indication: ESSENTIAL HYPERTENSION
     Route: 048
     Dates: start: 20130416
  14. PIPERACILLINE [Concomitant]
     Indication: BACTERIAL INFECTION
     Route: 040
     Dates: start: 20130416, end: 20130418
  15. TAZOBACTAM [Concomitant]
     Indication: BACTERIAL INFECTION
     Route: 040
     Dates: start: 20130416, end: 20130418

REACTIONS (5)
  - Cardiac failure [Recovered/Resolved]
  - Renal failure acute [Unknown]
  - Inflammation [Unknown]
  - Coagulopathy [Unknown]
  - Liver injury [Recovering/Resolving]
